FAERS Safety Report 7186013-8 (Version None)
Quarter: 2010Q4

REPORT INFORMATION
  Report Type: 
  Country: None (occurrence: None)
  Receive Date: 20101222
  Receipt Date: 20101214
  Transmission Date: 20110411
  Serious: Yes (Other)
  Sender: FDA-Public Use
  Company Number: SK-PFIZER INC-2010172180

PATIENT
  Sex: Female

DRUGS (1)
  1. LYRICA [Suspect]
     Indication: ANXIETY
     Dosage: 75 MG, UNK
     Dates: start: 20100101, end: 20100101

REACTIONS (3)
  - HAEMATOLOGY TEST ABNORMAL [None]
  - PUPILLARY DISORDER [None]
  - VISUAL ACUITY REDUCED [None]
